FAERS Safety Report 6715547-2 (Version None)
Quarter: 2010Q2

REPORT INFORMATION
  Report Type: 
  Country: None (occurrence: None)
  Receive Date: 20100506
  Receipt Date: 20100506
  Transmission Date: 20101027
  Serious: Yes (Hospitalization)
  Sender: FDA-Public Use
  Company Number: None

PATIENT
  Age: 33 Year
  Sex: Male
  Weight: 88 kg

DRUGS (6)
  1. ATAZANAVIR [Suspect]
     Indication: HIV INFECTION
     Dosage: 300MG DAILY PO OUTPT DOSE
     Route: 048
  2. CITALOPRAM [Concomitant]
  3. RITANAVIR [Concomitant]
  4. RALTEGRAVIR [Concomitant]
  5. FISH OIL [Concomitant]
  6. ANTIHEMOPHILIC FACTOR (HUMAN) [Concomitant]

REACTIONS (3)
  - ABDOMINAL TENDERNESS [None]
  - CHOLESTASIS [None]
  - HAEMATOCHEZIA [None]
